FAERS Safety Report 14438692 (Version 1)
Quarter: 2018Q1

REPORT INFORMATION
  Report Type: Spontaneous
  Country: US (occurrence: US)
  Receive Date: 20180125
  Receipt Date: 20180125
  Transmission Date: 20180509
  Serious: Yes (Other)
  Sender: FDA-Public Use
  Company Number: US-ASTRAZENECA-2018SE07128

PATIENT
  Age: 58 Year
  Sex: Female

DRUGS (7)
  1. CALCIUM CITRATE [Concomitant]
     Active Substance: CALCIUM CITRATE
     Route: 065
  2. BONVIVA [Suspect]
     Active Substance: IBANDRONATE SODIUM
     Indication: OSTEOPOROSIS
     Route: 048
  3. CALCIUM CITRATE [Concomitant]
     Active Substance: CALCIUM CITRATE
     Route: 065
  4. OMEPRAZOLE. [Suspect]
     Active Substance: OMEPRAZOLE
     Route: 048
  5. CHOLECALCIFEROL [Concomitant]
     Active Substance: CHOLECALCIFEROL
     Dosage: 50000 IU TWICE WEEKLY IN ADDITION TO 5000 IU CHOLECALCIFEROL DAILY.
     Route: 065
  6. CHOLECALCIFEROL [Concomitant]
     Active Substance: CHOLECALCIFEROL
     Route: 065
  7. PREMARIN [Concomitant]
     Active Substance: ESTROGENS, CONJUGATED
     Indication: HORMONE REPLACEMENT THERAPY
     Route: 065

REACTIONS (5)
  - Sternal fracture [Unknown]
  - Osteomalacia [Recovering/Resolving]
  - Stress fracture [Unknown]
  - Hypocalcaemia [Recovered/Resolved]
  - Pubis fracture [Unknown]
